FAERS Safety Report 12213499 (Version 1)
Quarter: 2016Q1

REPORT INFORMATION
  Report Type: Spontaneous
  Country: US (occurrence: None)
  Receive Date: 20160325
  Receipt Date: 20160325
  Transmission Date: 20160526
  Serious: No
  Sender: FDA-Public Use
  Company Number: None

PATIENT
  Age: 48 Year
  Sex: Male

DRUGS (1)
  1. TRIUMEQ [Suspect]
     Active Substance: ABACAVIR SULFATE\DOLUTEGRAVIR SODIUM\LAMIVUDINE
     Indication: IMMUNODEFICIENCY
     Route: 048
     Dates: start: 20160209

REACTIONS (2)
  - Pain [None]
  - Myalgia [None]

NARRATIVE: CASE EVENT DATE: 20160316
